FAERS Safety Report 4280125-4 (Version None)
Quarter: 2004Q1

REPORT INFORMATION
  Report Type: 
  Country: None (occurrence: None)
  Receive Date: 20040126
  Receipt Date: 20040114
  Transmission Date: 20041129
  Serious: Yes (Death)
  Sender: FDA-Public Use
  Company Number: JP-JNJFOC-20040102853

PATIENT
  Age: 77 Year
  Sex: Female

DRUGS (3)
  1. FENTANYL [Suspect]
     Indication: CANCER PAIN
     Dosage: SEE IMAGE
     Route: 062
     Dates: start: 20031215, end: 20031218
  2. FENTANYL [Suspect]
     Indication: CANCER PAIN
     Dosage: SEE IMAGE
     Route: 062
     Dates: start: 20031216, end: 20031218
  3. FENTANYL [Suspect]
     Indication: CANCER PAIN
     Dosage: SEE IMAGE
     Route: 062
     Dates: start: 20031219, end: 20031225

REACTIONS (3)
  - BREAST CANCER [None]
  - DEPRESSED LEVEL OF CONSCIOUSNESS [None]
  - MALIGNANT NEOPLASM PROGRESSION [None]
